FAERS Safety Report 9671794 (Version 2)
Quarter: 2013Q4

REPORT INFORMATION
  Report Type: Spontaneous
  Country: IT (occurrence: IT)
  Receive Date: 20131106
  Receipt Date: 20131118
  Transmission Date: 20140711
  Serious: Yes (Hospitalization)
  Sender: FDA-Public Use
  Company Number: PHHY2013IT124540

PATIENT
  Sex: Female

DRUGS (8)
  1. VOLTAREN [Suspect]
     Indication: PAIN
     Dosage: 1 DF, PRN
     Route: 048
     Dates: start: 20130801, end: 20131019
  2. VOLTAREN [Interacting]
     Indication: ULCER
  3. TICLOPIDINE [Interacting]
     Indication: PERIPHERAL ISCHAEMIA
     Dosage: 1 DF, QD
     Route: 048
     Dates: start: 20121101, end: 20131019
  4. NIMESULIDE [Interacting]
     Dosage: 1 DF, PRN
     Route: 048
     Dates: start: 20130801, end: 20131019
  5. TELMISARTAN [Concomitant]
     Dosage: 80 MG, UNK
     Route: 048
  6. FUROSEMIDE [Concomitant]
     Dosage: 25 MG, UNK
     Route: 048
  7. ATORVASTATIN [Concomitant]
     Dosage: 20 MG, UNK
     Route: 048
  8. LERCANIDIPINE [Concomitant]
     Dosage: 10 MG, UNK

REACTIONS (3)
  - Drug interaction [Recovering/Resolving]
  - Anaemia [Recovering/Resolving]
  - Epistaxis [Recovered/Resolved]
